FAERS Safety Report 19761562 (Version 1)
Quarter: 2021Q3

REPORT INFORMATION
  Report Type: Spontaneous
  Country: JP (occurrence: JP)
  Receive Date: 20210830
  Receipt Date: 20210830
  Transmission Date: 20211014
  Serious: Yes (Other)
  Sender: FDA-Public Use
  Company Number: JP-ASTRAZENECA-2021A702837

PATIENT
  Age: 35 Year
  Sex: Female

DRUGS (2)
  1. PREDONINE [Suspect]
     Active Substance: PREDNISOLONE
     Indication: BEHCET^S SYNDROME
     Dosage: UNK UNK, UNKNOWN FREQ.
     Route: 048
  2. SEROQUEL [Suspect]
     Active Substance: QUETIAPINE FUMARATE
     Indication: PRODUCT USED FOR UNKNOWN INDICATION
     Dosage: UNK UNK, UNKNOWN FREQ. UNKNOWN
     Route: 048

REACTIONS (4)
  - Mental disorder [Unknown]
  - Attention deficit hyperactivity disorder [Unknown]
  - Hyperglycaemia [Unknown]
  - Behcet^s syndrome [Unknown]
